FAERS Safety Report 10160810 (Version 2)
Quarter: 2014Q2

REPORT INFORMATION
  Report Type: Report from Study
  Country: US (occurrence: US)
  Receive Date: 20140508
  Receipt Date: 20140508
  Transmission Date: 20141212
  Serious: No
  Sender: FDA-Public Use
  Company Number: US-ASTRAZENECA-2014SE22309

PATIENT
  Age: 85 Year
  Sex: Male
  Weight: 87.1 kg

DRUGS (2)
  1. SYMBICORT [Suspect]
     Indication: CHRONIC OBSTRUCTIVE PULMONARY DISEASE
     Dosage: DOSE: 160 MCG/4.5 MCG 2 PUFFS,FREQUENCY: DAILY
     Route: 055
  2. SYMBICORT [Suspect]
     Indication: CHRONIC OBSTRUCTIVE PULMONARY DISEASE
     Dosage: DOSE: 160 MCG/4.5 MCG 2 PUFFS,FREQUENCY: TWO TIMES A DAY
     Route: 055
     Dates: start: 2011

REACTIONS (5)
  - Movement disorder [Unknown]
  - Neuropathy peripheral [Unknown]
  - Intentional product misuse [Unknown]
  - Intentional product misuse [Unknown]
  - Device misuse [Unknown]
